FAERS Safety Report 24940341 (Version 1)
Quarter: 2025Q1

REPORT INFORMATION
  Report Type: Spontaneous
  Country: CA (occurrence: CA)
  Receive Date: 20250207
  Receipt Date: 20250207
  Transmission Date: 20250409
  Serious: Yes (Other)
  Sender: HIKMA
  Company Number: CA-HIKMA PHARMACEUTICALS USA INC.-CA-H14001-25-01124

PATIENT

DRUGS (1)
  1. MITOMYCIN [Suspect]
     Active Substance: MITOMYCIN
     Indication: Product used for unknown indication
     Route: 065

REACTIONS (4)
  - Eyelid ptosis [Recovering/Resolving]
  - Ophthalmoplegia [Recovering/Resolving]
  - Disorder of orbit [Recovering/Resolving]
  - Incorrect route of product administration [Unknown]
